FAERS Safety Report 21687015 (Version 1)
Quarter: 2022Q4

REPORT INFORMATION
  Report Type: Report from Study
  Country: US (occurrence: US)
  Receive Date: 20221206
  Receipt Date: 20221206
  Transmission Date: 20230113
  Serious: No
  Sender: FDA-Public Use
  Company Number: US-ABBVIE-4193039

PATIENT
  Age: 57 Year
  Sex: Female

DRUGS (10)
  1. RINVOQ [Suspect]
     Active Substance: UPADACITINIB
     Indication: Rheumatoid arthritis
     Route: 048
     Dates: start: 202210
  2. ATORVASTATIN [Concomitant]
     Active Substance: ATORVASTATIN
     Indication: Product used for unknown indication
  3. PFIZER COVID-19 VACCINE (EUA) [Concomitant]
     Indication: COVID-19 immunisation
     Route: 030
  4. MULTIVITAMIN GUMMIES [Concomitant]
     Indication: Product used for unknown indication
  5. CALCIUM 20 MG TABLET [Concomitant]
     Indication: Product used for unknown indication
  6. FLUCELVAX QUAD 2021-2022 [Concomitant]
     Indication: Product used for unknown indication
  7. FLUCELVAX QUAD 2022-2023 [Concomitant]
     Indication: Product used for unknown indication
  8. SHINGRIX 50 MCG/0.5 KIT [Concomitant]
     Indication: Product used for unknown indication
  9. METFORMIN HYDROCHLORIDE [Concomitant]
     Active Substance: METFORMIN HYDROCHLORIDE
     Indication: Product used for unknown indication
  10. BOOSTRIX TDAP 2.5-8-5/.5 SYRINGE [Concomitant]
     Indication: Product used for unknown indication

REACTIONS (4)
  - COVID-19 [Recovered/Resolved]
  - Ear infection [Not Recovered/Not Resolved]
  - Dizziness [Recovered/Resolved]
  - Ear pain [Not Recovered/Not Resolved]

NARRATIVE: CASE EVENT DATE: 20221103
